FAERS Safety Report 4684958-1 (Version None)
Quarter: 2005Q2

REPORT INFORMATION
  Report Type: 
  Country: None (occurrence: None)
  Receive Date: 20050603
  Receipt Date: 20050517
  Transmission Date: 20051028
  Serious: Yes (Death)
  Sender: FDA-Public Use
  Company Number: HQWYE823420MAY05

PATIENT
  Age: 47 Year
  Sex: Male

DRUGS (1)
  1. NIPENT [Suspect]
     Indication: GRAFT VERSUS HOST DISEASE
     Dosage: 2 MG/M^2 1X PER 1 DAY; INTRAVENOUS
     Route: 042

REACTIONS (2)
  - HEPATIC FAILURE [None]
  - SEPTIC SHOCK [None]
